FAERS Safety Report 4616463-2 (Version None)
Quarter: 2005Q1

REPORT INFORMATION
  Report Type: 
  Country: None (occurrence: None)
  Receive Date: 20050318
  Receipt Date: 20050302
  Transmission Date: 20050727
  Serious: Yes (Death)
  Sender: FDA-Public Use
  Company Number: L04-USA-07403-43

PATIENT
  Age: 73 Year
  Sex: Male

DRUGS (2)
  1. THEOPHYLLINE [Suspect]
  2. CIPROFLOXACIN [Suspect]

REACTIONS (11)
  - AGITATION [None]
  - BLOOD PH DECREASED [None]
  - BLOOD PRESSURE DECREASED [None]
  - CONVULSION [None]
  - LOBAR PNEUMONIA [None]
  - MULTIPLE DRUG OVERDOSE ACCIDENTAL [None]
  - PCO2 INCREASED [None]
  - PLEURAL EFFUSION [None]
  - PO2 INCREASED [None]
  - TACHYCARDIA [None]
  - THERAPY NON-RESPONDER [None]
